FAERS Safety Report 8556351-2 (Version None)
Quarter: 2012Q3

REPORT INFORMATION
  Report Type: 
  Country: None (occurrence: None)
  Receive Date: 20120801
  Receipt Date: 20120725
  Transmission Date: 20120928
  Serious: Yes (Other)
  Sender: FDA-Public Use
  Company Number: BR-ABBOTT-11P-020-0886221-00

PATIENT
  Sex: Female
  Weight: 77 kg

DRUGS (8)
  1. METHOTREXATE [Suspect]
     Dosage: 2 TB AM, 2 TB PM, ON MONDAYS
     Dates: start: 20100901
  2. METICORTEN [Concomitant]
  3. TENOXICAM [Concomitant]
     Indication: PAIN
     Dates: start: 20100101
  4. METICORTEN [Concomitant]
     Indication: MUSCULOSKELETAL PAIN
     Dosage: SOMETIMES SHE USED HALF TABLET A DAY
     Dates: start: 19750101
  5. LOSARTAN POTASSIUM [Concomitant]
     Indication: HYPERTENSION
  6. HYDROCHLOROTHIAZIDE [Concomitant]
     Indication: HYPERTENSION
     Dates: start: 20100101
  7. HUMIRA [Suspect]
     Indication: RHEUMATOID ARTHRITIS
     Route: 058
     Dates: end: 20111129
  8. METHOTREXATE [Suspect]
     Indication: RHEUMATOID ARTHRITIS
     Dosage: 4 TABLETS EVERY MONDAY, ONCE

REACTIONS (13)
  - NECK MASS [None]
  - LYMPH NODE TUBERCULOSIS [None]
  - SPINAL PAIN [None]
  - SWELLING [None]
  - DYSURIA [None]
  - PYREXIA [None]
  - UPPER EXTREMITY MASS [None]
  - ARTHRALGIA [None]
  - VOMITING [None]
  - DIARRHOEA [None]
  - LOWER EXTREMITY MASS [None]
  - FLATULENCE [None]
  - MALAISE [None]
